FAERS Safety Report 10229198 (Version 1)
Quarter: 2014Q2

REPORT INFORMATION
  Report Type: Spontaneous
  Country: US (occurrence: US)
  Receive Date: 20140611
  Receipt Date: 20140611
  Transmission Date: 20141212
  Serious: Yes (Hospitalization, Other)
  Sender: FDA-Public Use
  Company Number: US-AMGEN-USASP2014042051

PATIENT
  Age: 65 Year
  Sex: Male

DRUGS (1)
  1. PROLIA [Suspect]
     Indication: OSTEOPOROSIS
     Dosage: UNK
     Route: 065
     Dates: start: 2012

REACTIONS (9)
  - Fall [Unknown]
  - Guillain-Barre syndrome [Unknown]
  - Memory impairment [Unknown]
  - Visual impairment [Unknown]
  - Restless legs syndrome [Unknown]
  - Hallucination [Unknown]
  - Cellulitis [Unknown]
  - Eye discharge [Unknown]
  - Tremor [Unknown]
